FAERS Safety Report 10384991 (Version 1)
Quarter: 2014Q3

REPORT INFORMATION
  Report Type: Spontaneous
  Country: FR (occurrence: FR)
  Receive Date: 20140814
  Receipt Date: 20140814
  Transmission Date: 20150326
  Serious: Yes (Hospitalization)
  Sender: FDA-Public Use
  Company Number: FR-009507513-1408FRA008083

PATIENT
  Age: 40 Year
  Sex: Female

DRUGS (10)
  1. CYTARABINE. [Suspect]
     Active Substance: CYTARABINE
     Dosage: 314 MG, QD
     Route: 042
     Dates: start: 20140708, end: 20140714
  2. SPASFON [Concomitant]
     Active Substance: PHLOROGLUCINOL
  3. NOXAFIL [Suspect]
     Active Substance: POSACONAZOLE
     Dosage: 15 ML, QD
     Dates: start: 20140710
  4. LUTENYL [Concomitant]
     Active Substance: NOMEGESTROL ACETATE
  5. SMECTA [Concomitant]
     Active Substance: MONTMORILLONITE
  6. CERUBIDINE [Suspect]
     Active Substance: DAUNORUBICIN HYDROCHLORIDE
     Dosage: 140 MG, QD
     Route: 042
     Dates: start: 20140708, end: 20140710
  7. ONDANSETRON HYDROCHLORIDE. [Concomitant]
     Active Substance: ONDANSETRON HYDROCHLORIDE
  8. PIPERACILLIN AND TAZOBACTAM [Suspect]
     Active Substance: PIPERACILLIN SODIUM\TAZOBACTAM SODIUM
     Dosage: 1 DF, TID
     Route: 042
     Dates: start: 20140715, end: 20140725
  9. TIORFAN [Concomitant]
     Active Substance: RACECADOTRIL
  10. INEXIUM (ESOMEPRAZOLE MAGNESIUM) [Concomitant]
     Active Substance: ESOMEPRAZOLE MAGNESIUM

REACTIONS (1)
  - Toxic skin eruption [Recovering/Resolving]

NARRATIVE: CASE EVENT DATE: 20140717
